FAERS Safety Report 6266542-1 (Version None)
Quarter: 2009Q3

REPORT INFORMATION
  Report Type: 
  Country: None (occurrence: None)
  Receive Date: 20090713
  Receipt Date: 20090703
  Transmission Date: 20100115
  Serious: Yes (Hospitalization)
  Sender: FDA-Public Use
  Company Number: FR-MERCK-0907FRA00009

PATIENT
  Age: 37 Year
  Sex: Male
  Weight: 75 kg

DRUGS (7)
  1. PROPECIA [Suspect]
     Indication: ALOPECIA
     Route: 048
     Dates: start: 19990101
  2. PROPECIA [Suspect]
     Route: 048
     Dates: start: 20090128, end: 20090218
  3. PROPECIA [Suspect]
     Route: 048
     Dates: start: 20090301, end: 20090301
  4. LYMECYCLINE [Suspect]
     Route: 048
     Dates: start: 20081230, end: 20090119
  5. ACETAMINOPHEN AND PROPOXYPHENE HYDROCHLORIDE [Suspect]
     Route: 048
     Dates: start: 20081221, end: 20090113
  6. ENOXAPARIN SODIUM [Concomitant]
     Indication: PROPHYLAXIS
     Route: 065
  7. TRAMADOL HYDROCHLORIDE [Concomitant]
     Route: 065
     Dates: start: 20081215, end: 20081221

REACTIONS (3)
  - CYTOLYTIC HEPATITIS [None]
  - HYPERLIPASAEMIA [None]
  - JAUNDICE [None]
